FAERS Safety Report 5330903-5 (Version None)
Quarter: 2007Q2

REPORT INFORMATION
  Report Type: 
  Country: None (occurrence: None)
  Receive Date: 20070516
  Receipt Date: 20070501
  Transmission Date: 20071010
  Serious: Yes (Hospitalization)
  Sender: FDA-Public Use
  Company Number: 2006SP004312

PATIENT
  Age: 69 Year
  Sex: Female
  Weight: 105.9 kg

DRUGS (7)
  1. XOPENEX [Suspect]
     Indication: CHRONIC OBSTRUCTIVE PULMONARY DISEASE
     Dosage: 45 UG;PRN;INHALATION
     Route: 055
     Dates: start: 20061001
  2. FLUOXETINE [Concomitant]
  3. PIROXICAM [Concomitant]
  4. CALCIUM CHLORIDE [Concomitant]
  5. VITAMIN CAP [Concomitant]
  6. ASPIRIN [Concomitant]
  7. OXYGEN [Concomitant]

REACTIONS (2)
  - CHRONIC OBSTRUCTIVE PULMONARY DISEASE [None]
  - CONDITION AGGRAVATED [None]
